FAERS Safety Report 8442789-0 (Version None)
Quarter: 2012Q2

REPORT INFORMATION
  Report Type: 
  Country: None (occurrence: None)
  Receive Date: 20120615
  Receipt Date: 20120606
  Transmission Date: 20120825
  Serious: Yes (Other)
  Sender: FDA-Public Use
  Company Number: US-ROCHE-788846

PATIENT
  Sex: Female
  Weight: 44.038 kg

DRUGS (5)
  1. ACCUTANE [Suspect]
     Indication: ACNE
     Route: 048
  2. ACCUTANE [Suspect]
  3. ACCUTANE [Suspect]
     Dosage: DOSE: 40 MG QHS AND 10 MG QAM
     Dates: start: 19991107, end: 20000701
  4. MINOCIN [Concomitant]
     Route: 048
  5. ACCUTANE [Suspect]
     Dates: start: 19971001, end: 19980901

REACTIONS (10)
  - UPPER EXTREMITY MASS [None]
  - IRRITABLE BOWEL SYNDROME [None]
  - EMOTIONAL DISTRESS [None]
  - MALIGNANT NEOPLASM OF CORNEA [None]
  - BLOOD CHOLESTEROL INCREASED [None]
  - ANAL FISSURE [None]
  - SKIN DISCOLOURATION [None]
  - INFLAMMATORY BOWEL DISEASE [None]
  - COLITIS ULCERATIVE [None]
  - PROCTITIS ULCERATIVE [None]
